FAERS Safety Report 13137861 (Version 1)
Quarter: 2017Q1

REPORT INFORMATION
  Report Type: Spontaneous
  Country: US (occurrence: US)
  Receive Date: 20170123
  Receipt Date: 20170123
  Transmission Date: 20170428
  Serious: No
  Sender: FDA-Public Use
  Company Number: US-UNITED THERAPEUTICS-UNT-2016-007684

PATIENT
  Age: 56 Year
  Sex: Female
  Weight: 120.18 kg

DRUGS (3)
  1. REMODULIN [Suspect]
     Active Substance: TREPROSTINIL
     Indication: PULMONARY HYPERTENSION
     Dosage: 0.0198 ?G/KG, CONTINUING
     Route: 058
     Dates: start: 20160219
  2. REMODULIN [Suspect]
     Active Substance: TREPROSTINIL
     Dosage: 0.0291 ?G/KG, CONTINUING
     Route: 058
  3. ADCIRCA [Concomitant]
     Active Substance: TADALAFIL
     Indication: PRODUCT USED FOR UNKNOWN INDICATION

REACTIONS (5)
  - Infusion site pain [Unknown]
  - Drug hypersensitivity [Unknown]
  - Infusion site rash [Unknown]
  - Infusion site infection [Unknown]
  - Condition aggravated [Unknown]

NARRATIVE: CASE EVENT DATE: 201605
